FAERS Safety Report 22326192 (Version 1)
Quarter: 2023Q2

REPORT INFORMATION
  Report Type: Spontaneous
  Country: RO (occurrence: RO)
  Receive Date: 20230516
  Receipt Date: 20230516
  Transmission Date: 20230722
  Serious: Yes (Other)
  Sender: FDA-Public Use
  Company Number: RO-BAUSCH-BL-2023-007430

PATIENT
  Sex: Male

DRUGS (1)
  1. RIFAXIMIN [Suspect]
     Active Substance: RIFAXIMIN
     Indication: Constipation
     Route: 065

REACTIONS (6)
  - Suicide threat [Unknown]
  - Seizure [Unknown]
  - Stress [Unknown]
  - Pain [Unknown]
  - Flatulence [Unknown]
  - Intentional product use issue [Unknown]
